FAERS Safety Report 12852948 (Version 1)
Quarter: 2016Q4

REPORT INFORMATION
  Report Type: Spontaneous
  Country: US (occurrence: US)
  Receive Date: 20161014
  Receipt Date: 20161014
  Transmission Date: 20170207
  Serious: Yes (Life-Threatening, Hospitalization)
  Sender: FDA-Public Use
  Company Number: None

PATIENT
  Age: 20 Year
  Sex: Female

DRUGS (1)
  1. ENTYVIO [Suspect]
     Active Substance: VEDOLIZUMAB
     Route: 042

REACTIONS (3)
  - Loss of consciousness [None]
  - Abdominal pain upper [None]
  - Hypersensitivity [None]

NARRATIVE: CASE EVENT DATE: 20160930
